FAERS Safety Report 8979802 (Version 1)
Quarter: 2012Q4

REPORT INFORMATION
  Report Type: 
  Country: JP (occurrence: JP)
  Receive Date: 20121221
  Receipt Date: 20121221
  Transmission Date: 20130627
  Serious: Yes (Other)
  Sender: FDA-Public Use
  Company Number: JP-EISAI INC-E2090-02459-SPO-JP

PATIENT
  Age: 27 Year
  Sex: Male

DRUGS (4)
  1. EXCEGRAN [Suspect]
     Indication: DRUG USE FOR UNKNOWN INDICATION
     Dosage: Unknown
     Route: 048
  2. MERCAZOLE [Suspect]
     Indication: DRUG USE FOR UNKNOWN INDICATION
     Dosage: Unknown
     Route: 065
     Dates: end: 201211
  3. E KEPPRA [Suspect]
     Indication: DRUG USE FOR UNKNOWN INDICATION
     Dosage: Unknown
     Route: 048
  4. GASTER [Suspect]
     Indication: DRUG USE FOR UNKNOWN INDICATION
     Dosage: Unknown
     Route: 065

REACTIONS (2)
  - White blood cell count decreased [Unknown]
  - Anaemia [Unknown]
